FAERS Safety Report 19779099 (Version 16)
Quarter: 2023Q4

REPORT INFORMATION
  Report Type: Report from Study
  Country: US (occurrence: US)
  Receive Date: 20210902
  Receipt Date: 20231121
  Transmission Date: 20240110
  Serious: Yes (Other)
  Sender: FDA-Public Use
  Company Number: US-HLS-202105216

PATIENT
  Age: 32 Year
  Sex: Male

DRUGS (5)
  1. CLOZARIL [Suspect]
     Active Substance: CLOZAPINE
     Indication: Product used for unknown indication
     Route: 065
  2. CLOZARIL [Suspect]
     Active Substance: CLOZAPINE
     Indication: Product used for unknown indication
     Dosage: 100MG, 30 DAY SUPPLY, QUANTITY 75
     Route: 065
  3. CLOZARIL [Suspect]
     Active Substance: CLOZAPINE
     Indication: Product used for unknown indication
     Dosage: 100MG, 30 DAY SUPPLY, QUANTITY 75
     Route: 065
  4. CLOZARIL [Suspect]
     Active Substance: CLOZAPINE
     Indication: Product used for unknown indication
     Dosage: 100MG, 30 DAY SUPPLY, QUANTITY 90
     Route: 065
  5. CLOZARIL [Suspect]
     Active Substance: CLOZAPINE
     Indication: Product used for unknown indication
     Dosage: 100MG 30 DAY SUPPLY, QUANTITY 75
     Route: 065

REACTIONS (20)
  - Therapy interrupted [Recovered/Resolved]
  - Agitation [Not Recovered/Not Resolved]
  - Memory impairment [Unknown]
  - Mood swings [Unknown]
  - Incorrect dose administered [Unknown]
  - Product use issue [Not Recovered/Not Resolved]
  - Anger [Unknown]
  - Depression [Not Recovered/Not Resolved]
  - Aggression [Recovered/Resolved]
  - Anxiety [Unknown]
  - Insomnia [Unknown]
  - Intentional underdose [Unknown]
  - Peripheral swelling [Unknown]
  - Therapy interrupted [Recovered/Resolved]
  - Drug withdrawal syndrome [Unknown]
  - Therapy interrupted [Not Recovered/Not Resolved]
  - Drug withdrawal syndrome [Unknown]
  - Therapy interrupted [Recovered/Resolved]
  - Therapy interrupted [Recovered/Resolved]
  - Withdrawal syndrome [Unknown]

NARRATIVE: CASE EVENT DATE: 20210825
